FAERS Safety Report 17585907 (Version 1)
Quarter: 2020Q1

REPORT INFORMATION
  Report Type: Spontaneous
  Country: ES (occurrence: ES)
  Receive Date: 20200326
  Receipt Date: 20200326
  Transmission Date: 20200409
  Serious: Yes (Hospitalization)
  Sender: FDA-Public Use
  Company Number: ES-MYLANLABS-2020M1031978

PATIENT
  Sex: Female

DRUGS (5)
  1. ONDANSETRON [Suspect]
     Active Substance: ONDANSETRON
     Indication: HYPEREMESIS GRAVIDARUM
     Dosage: 4 MILLIGRAM, BID
     Route: 064
     Dates: start: 20190704, end: 20190709
  2. RANITIDINE. [Suspect]
     Active Substance: RANITIDINE
     Indication: HYPEREMESIS GRAVIDARUM
     Dosage: 150 MILLIGRAM, BID
     Route: 064
     Dates: start: 20190701, end: 20190718
  3. BOOSTRIX POLIO [Suspect]
     Active Substance: DIPHTHERIA AND TETANUS TOXOIDS AND ACELLULAR PERTUSSIS ADSORBED AND INACTIVATED POLIOVIRUS VACCINE
     Indication: PROPHYLAXIS
     Dosage: UNK
     Route: 064
     Dates: start: 20191108, end: 20191108
  4. METOCLOPRAMIDA                     /00041901/ [Suspect]
     Active Substance: METOCLOPRAMIDE
     Indication: HYPEREMESIS GRAVIDARUM
     Dosage: 10 MILLIGRAM, Q8H
     Route: 064
     Dates: start: 20190701, end: 20190926
  5. VAXIGRIPTETRA [Suspect]
     Active Substance: INFLUENZA VIRUS VACCINE QUADRIVALENT TYPE A+B
     Indication: ANTIVIRAL PROPHYLAXIS
     Dosage: UNK
     Route: 064
     Dates: start: 20191108, end: 20191108

REACTIONS (2)
  - Foetal exposure during pregnancy [Recovered/Resolved]
  - Foetal growth restriction [Recovering/Resolving]

NARRATIVE: CASE EVENT DATE: 2019
